FAERS Safety Report 23814405 (Version 2)
Quarter: 2025Q1

REPORT INFORMATION
  Report Type: Spontaneous
  Country: RU (occurrence: RU)
  Receive Date: 20240503
  Receipt Date: 20250213
  Transmission Date: 20250409
  Serious: Yes (Other)
  Sender: TORRENT PHARMA INC.
  Company Number: RU-TORRENT-00000078

PATIENT
  Age: 23 Year
  Sex: Female
  Weight: 63 kg

DRUGS (2)
  1. SERTRALINE HYDROCHLORIDE [Suspect]
     Active Substance: SERTRALINE HYDROCHLORIDE
     Indication: Product used for unknown indication
     Dosage: 25 MG GRADUALLY INCREASED (OVER 10 MONTHS) TO 150 MG (2 MONTHS) TAKEN ONCE DAILY (IN THE MORNING)
     Route: 065
     Dates: start: 20240403, end: 20240404
  2. QUETIAPINE [Concomitant]
     Active Substance: QUETIAPINE
     Indication: Product used for unknown indication
     Route: 065

REACTIONS (16)
  - Withdrawal syndrome [Unknown]
  - Dizziness [Unknown]
  - Paraesthesia [Unknown]
  - Sleep disorder [Unknown]
  - Hallucination [Unknown]
  - Sleep paralysis [Unknown]
  - Panic reaction [Unknown]
  - Nightmare [Unknown]
  - Agitation [Unknown]
  - Decreased appetite [Unknown]
  - Nausea [Unknown]
  - Diarrhoea [Unknown]
  - Headache [Not Recovered/Not Resolved]
  - Irritability [Unknown]
  - Apathy [Unknown]
  - Panic attack [Unknown]

NARRATIVE: CASE EVENT DATE: 20240401
